FAERS Safety Report 9295572 (Version 1)
Quarter: 2013Q1

REPORT INFORMATION
  Report Type: Spontaneous
  Country: US (occurrence: None)
  Receive Date: 20121227
  Receipt Date: 20121227
  Transmission Date: 20140127
  Serious: Yes (Hospitalization, Other)
  Sender: FDA-Public Use
  Company Number: PHEH2011US009158

PATIENT
  Age: 14 Year
  Sex: Female

DRUGS (3)
  1. EXJADE [Suspect]
     Route: 048
  2. PLAVIX (CLOPIDOGREL SULFATE) [Concomitant]
  3. FOLIC ACID (FOLIC ACID) [Concomitant]

REACTIONS (2)
  - Sickle cell anaemia with crisis [None]
  - Pain [None]
